FAERS Safety Report 7379901-0 (Version None)
Quarter: 2011Q1

REPORT INFORMATION
  Report Type: 
  Country: None (occurrence: None)
  Receive Date: 20110329
  Receipt Date: 20110316
  Transmission Date: 20110831
  Serious: Yes (Other)
  Sender: FDA-Public Use
  Company Number: US-CELGENEUS-163-21880-11032244

PATIENT
  Sex: Female
  Weight: 52.2 kg

DRUGS (1)
  1. REVLIMID [Suspect]
     Indication: SYSTEMIC LUPUS ERYTHEMATOSUS
     Dosage: 5 MILLIGRAM
     Route: 048
     Dates: start: 20110216

REACTIONS (2)
  - MUSCLE SPASMS [None]
  - MENSTRUAL DISORDER [None]
